FAERS Safety Report 10564716 (Version 1)
Quarter: 2014Q4

REPORT INFORMATION
  Report Type: Spontaneous
  Country: US (occurrence: US)
  Receive Date: 20141105
  Receipt Date: 20141105
  Transmission Date: 20150529
  Serious: Yes (Hospitalization, Other)
  Sender: FDA-Public Use
  Company Number: US-AMGEN-USASP2014084920

PATIENT
  Age: 55 Year
  Sex: Female

DRUGS (1)
  1. ENBREL [Suspect]
     Active Substance: ETANERCEPT
     Indication: PSORIATIC ARTHROPATHY
     Dosage: 50 MG, QWK
     Route: 065
     Dates: start: 20120820

REACTIONS (8)
  - Back pain [Not Recovered/Not Resolved]
  - Lower limb fracture [Recovered/Resolved]
  - Cyst rupture [Not Recovered/Not Resolved]
  - Device occlusion [Not Recovered/Not Resolved]
  - Angioplasty [Recovered/Resolved]
  - Cyst [Not Recovered/Not Resolved]
  - Stent placement [Recovered/Resolved]
  - Pain in extremity [Not Recovered/Not Resolved]

NARRATIVE: CASE EVENT DATE: 2014
